FAERS Safety Report 11990953 (Version 1)
Quarter: 2016Q1

REPORT INFORMATION
  Report Type: Report from Study
  Country: US (occurrence: US)
  Receive Date: 20160202
  Receipt Date: 20160202
  Transmission Date: 20160526
  Serious: Yes (Hospitalization, Other)
  Sender: FDA-Public Use
  Company Number: US-GILEAD-2016-0195195

PATIENT
  Age: 60 Year
  Sex: Female
  Weight: 70 kg

DRUGS (14)
  1. PRAVASTATIN [Concomitant]
     Active Substance: PRAVASTATIN\PRAVASTATIN SODIUM
  2. ALLOPURINOL. [Concomitant]
     Active Substance: ALLOPURINOL
  3. REMODULIN [Suspect]
     Active Substance: TREPROSTINIL
     Indication: PULMONARY ARTERIAL HYPERTENSION
     Dosage: .08 UG/KG, UNK
     Route: 058
     Dates: start: 20150106
  4. REMODULIN [Suspect]
     Active Substance: TREPROSTINIL
     Dosage: .08 UG/KG, UNK
     Route: 058
     Dates: start: 20150106
  5. NORVASC [Concomitant]
     Active Substance: AMLODIPINE BESYLATE
  6. AMBRISENTAN [Suspect]
     Active Substance: AMBRISENTAN
     Indication: PULMONARY ARTERIAL HYPERTENSION
     Dosage: 10 MG, QD
     Route: 065
     Dates: start: 20130703
  7. LISINOPRIL HCTZ [Concomitant]
     Active Substance: HYDROCHLOROTHIAZIDE\LISINOPRIL
  8. FENOFIBRATE. [Concomitant]
     Active Substance: FENOFIBRATE
  9. METOPROLOL. [Concomitant]
     Active Substance: METOPROLOL
  10. TRADJENTA [Concomitant]
     Active Substance: LINAGLIPTIN
  11. VELETRI [Concomitant]
     Active Substance: EPOPROSTENOL
  12. IMDUR [Concomitant]
     Active Substance: ISOSORBIDE MONONITRATE
  13. LASIX [Concomitant]
     Active Substance: FUROSEMIDE
  14. REMODULIN [Suspect]
     Active Substance: TREPROSTINIL
     Dosage: .08 UG/KG, UNK
     Route: 042

REACTIONS (3)
  - Nail discolouration [Unknown]
  - Poor peripheral circulation [Unknown]
  - Respiratory tract congestion [Not Recovered/Not Resolved]

NARRATIVE: CASE EVENT DATE: 201601
